FAERS Safety Report 8047628-8 (Version None)
Quarter: 2012Q1

REPORT INFORMATION
  Report Type: 
  Country: None (occurrence: None)
  Receive Date: 20120116
  Receipt Date: 20120103
  Transmission Date: 20120608
  Serious: Yes (Hospitalization)
  Sender: FDA-Public Use
  Company Number: FR-GLAXOSMITHKLINE-B0773774A

PATIENT
  Age: 78 Year
  Sex: Female
  Weight: 70 kg

DRUGS (6)
  1. ASPIRIN [Suspect]
     Indication: PRODUCT USED FOR UNKNOWN INDICATION
     Route: 048
     Dates: end: 20111027
  2. NEBIVOLOL HCL [Concomitant]
     Route: 065
  3. ARIXTRA [Suspect]
     Indication: PRODUCT USED FOR UNKNOWN INDICATION
     Dosage: 2.5MG PER DAY
     Route: 065
     Dates: end: 20111027
  4. NEURONTIN [Concomitant]
     Route: 065
  5. VITAMIN B-12 [Concomitant]
     Route: 065
  6. ZOLPIDEM [Concomitant]
     Dosage: 1UNIT PER DAY
     Route: 065

REACTIONS (9)
  - MELAENA [None]
  - ALTERED STATE OF CONSCIOUSNESS [None]
  - COLITIS ISCHAEMIC [None]
  - LIVEDO RETICULARIS [None]
  - PROCTOCOLITIS [None]
  - HYPOTENSION [None]
  - LOWER GASTROINTESTINAL HAEMORRHAGE [None]
  - SEPTIC SHOCK [None]
  - EROSIVE OESOPHAGITIS [None]
